FAERS Safety Report 5300365-2 (Version None)
Quarter: 2007Q2

REPORT INFORMATION
  Report Type: 
  Country: None (occurrence: None)
  Receive Date: 20070411
  Receipt Date: 20070326
  Transmission Date: 20071010
  Serious: Yes (Life-Threatening)
  Sender: FDA-Public Use
  Company Number: DSA_29515_2007

PATIENT
  Age: 31 Year
  Sex: Female

DRUGS (3)
  1. ENALAPRIL MALEATE [Suspect]
     Indication: RENAL IMPAIRMENT
     Dosage: 5 MG QD PO; A FEW YEARS
     Route: 048
     Dates: end: 20060519
  2. VALPROATE SODIUM [Suspect]
     Indication: CONVULSION PROPHYLAXIS
     Dosage: 700 MG Q DAY PO
     Route: 048
  3. PREDNISONE TAB [Concomitant]

REACTIONS (3)
  - ABORTION SPONTANEOUS [None]
  - DRUG EXPOSURE DURING PREGNANCY [None]
  - PREGNANCY [None]
